FAERS Safety Report 11486660 (Version 1)
Quarter: 2015Q3

REPORT INFORMATION
  Report Type: Spontaneous
  Country: US (occurrence: US)
  Receive Date: 20150910
  Receipt Date: 20150910
  Transmission Date: 20151125
  Serious: Yes (Other)
  Sender: FDA-Public Use
  Company Number: US-PFIZER INC-2015288038

PATIENT
  Age: 57 Year
  Sex: Female

DRUGS (1)
  1. IBRANCE [Suspect]
     Active Substance: PALBOCICLIB
     Indication: BREAST CANCER METASTATIC
     Dosage: 125 MG, CYCLIC: 1X/DAY (21 DAYS ON, 7 OFF)
     Route: 048
     Dates: start: 20150707

REACTIONS (5)
  - Breast cancer metastatic [Unknown]
  - Neutropenia [Unknown]
  - White blood cell count decreased [Unknown]
  - Rash [Recovering/Resolving]
  - Disease progression [Unknown]

NARRATIVE: CASE EVENT DATE: 2015
